FAERS Safety Report 6565364-1 (Version None)
Quarter: 2010Q1

REPORT INFORMATION
  Report Type: 
  Country: None (occurrence: None)
  Receive Date: 20100201
  Receipt Date: 20100125
  Transmission Date: 20100710
  Serious: Yes (Life-Threatening)
  Sender: FDA-Public Use
  Company Number: GXKR2010IT01178

PATIENT
  Sex: Female

DRUGS (2)
  1. MIRTAZAPINE [Suspect]
     Route: 065
  2. DRUG THERAPY NOS [Suspect]
     Route: 065

REACTIONS (4)
  - ELECTROCARDIOGRAM QT PROLONGED [None]
  - HEPATOTOXICITY [None]
  - SYNCOPE [None]
  - VENTRICULAR TACHYARRHYTHMIA [None]
